FAERS Safety Report 6326235-9 (Version None)
Quarter: 2009Q3

REPORT INFORMATION
  Report Type: 
  Country: None (occurrence: None)
  Receive Date: 20090820
  Receipt Date: 20090811
  Transmission Date: 20100115
  Serious: No
  Sender: FDA-Public Use
  Company Number: 2009009541

PATIENT

DRUGS (3)
  1. FENTORA [Suspect]
     Indication: PAIN
     Dosage: ORAL
     Route: 048
  2. DEMEROL [Concomitant]
  3. ACTIQ [Suspect]
     Indication: PAIN
     Dosage: 800 MCG, BU

REACTIONS (1)
  - DRUG PRESCRIBING ERROR [None]
